FAERS Safety Report 12594467 (Version 3)
Quarter: 2016Q3

REPORT INFORMATION
  Report Type: Spontaneous
  Country: US (occurrence: US)
  Receive Date: 20160726
  Receipt Date: 20160826
  Transmission Date: 20161109
  Serious: Yes (Other)
  Sender: FDA-Public Use
  Company Number: US-AUROBINDO-AUR-APU-2016-09311

PATIENT
  Sex: Female

DRUGS (1)
  1. CEFUROXIME AXETIL TABLETS USP 250 MG [Suspect]
     Active Substance: CEFUROXIME AXETIL
     Indication: PRODUCT USED FOR UNKNOWN INDICATION
     Dosage: ONE TABLET DAILY
     Route: 065

REACTIONS (5)
  - Dizziness [Not Recovered/Not Resolved]
  - Coordination abnormal [Not Recovered/Not Resolved]
  - Tinnitus [Unknown]
  - Balance disorder [Not Recovered/Not Resolved]
  - Deafness [Not Recovered/Not Resolved]
